FAERS Safety Report 4588013-0 (Version None)
Quarter: 2005Q1

REPORT INFORMATION
  Report Type: 
  Country: None (occurrence: None)
  Receive Date: 20050217
  Receipt Date: 20041019
  Transmission Date: 20050727
  Serious: Yes (Death)
  Sender: FDA-Public Use
  Company Number: 2004S1002711

PATIENT
  Age: 49 Year
  Sex: Male

DRUGS (16)
  1. CLOZAPINE [Suspect]
     Dosage: 25 MG, BID, ORAL
     Route: 048
     Dates: start: 20040319
  2. MORPHINE SULFATE [Concomitant]
  3. SERTRALINE HCL [Concomitant]
  4. ALBUTEROL [Concomitant]
  5. DIVALPROEX SODIUM [Concomitant]
  6. FENTANYL [Concomitant]
  7. FUROSEMIDE [Concomitant]
  8. POTASSIUM CHLORIDE [Concomitant]
  9. SORBITOL [Concomitant]
  10. DARBEPOETIN ALFA [Concomitant]
  11. ZIPRASIDONE [Concomitant]
  12. OXYCODONE HCL [Concomitant]
  13. METOPROLOL TARTRATE [Concomitant]
  14. LORAZEPAM [Concomitant]
  15. DIPHENOXYLATE/ATROPINE SULFATE [Concomitant]
  16. BISACODYL [Concomitant]

REACTIONS (1)
  - RENAL FAILURE CHRONIC [None]
